FAERS Safety Report 7898036-1 (Version None)
Quarter: 2011Q4

REPORT INFORMATION
  Report Type: 
  Country: None (occurrence: None)
  Receive Date: 20111107
  Receipt Date: 20111107
  Transmission Date: 20120403
  Serious: Yes (Other)
  Sender: FDA-Public Use
  Company Number: None

PATIENT
  Sex: Male
  Weight: 61.234 kg

DRUGS (1)
  1. LEVAQUIN [Suspect]

REACTIONS (2)
  - TENDONITIS [None]
  - TENDON RUPTURE [None]
